FAERS Safety Report 19865808 (Version 5)
Quarter: 2022Q2

REPORT INFORMATION
  Report Type: Report from Study
  Country: DE (occurrence: DE)
  Receive Date: 20210922
  Receipt Date: 20220519
  Transmission Date: 20220721
  Serious: Yes (Life-Threatening, Hospitalization, Other)
  Sender: FDA-Public Use
  Company Number: DE-TAKEDA-2021TUS021110

PATIENT
  Age: 75 Year
  Sex: Male
  Weight: 92.971 kg

DRUGS (22)
  1. HUMAN IMMUNOGLOBULIN G [Suspect]
     Active Substance: HUMAN IMMUNOGLOBULIN G
     Indication: Product used for unknown indication
     Dosage: UNK
     Route: 065
  2. REPLAGAL [Suspect]
     Active Substance: AGALSIDASE ALFA
     Indication: Fabry^s disease
     Dosage: 21 MILLIGRAM, Q.2WK.
     Route: 042
  3. REPLAGAL [Suspect]
     Active Substance: AGALSIDASE ALFA
     Indication: Gaucher^s disease
     Dosage: 21 MILLIGRAM, Q.2WK.
     Route: 042
  4. REPLAGAL [Suspect]
     Active Substance: AGALSIDASE ALFA
     Dosage: 21 MILLIGRAM, Q.2WK.
     Route: 042
  5. REPLAGAL [Suspect]
     Active Substance: AGALSIDASE ALFA
     Dosage: 21 MILLIGRAM, Q.2WK.
     Route: 042
  6. REPLAGAL [Suspect]
     Active Substance: AGALSIDASE ALFA
     Dosage: 21 MILLIGRAM, Q.2WK.
     Route: 042
  7. REPLAGAL [Suspect]
     Active Substance: AGALSIDASE ALFA
     Dosage: 21 MILLIGRAM, Q.2WK.
     Route: 042
  8. APIXABAN [Concomitant]
     Active Substance: APIXABAN
     Dosage: 10 MILLIGRAM, QD
     Route: 065
  9. BISOPROLOL [Concomitant]
     Active Substance: BISOPROLOL
     Dosage: 5 MILLIGRAM, QD
     Route: 065
  10. ENTRESTO [Concomitant]
     Active Substance: SACUBITRIL\VALSARTAN
     Dosage: UNK UNK, BID
     Route: 065
  11. ENTRESTO [Concomitant]
     Active Substance: SACUBITRIL\VALSARTAN
     Dosage: UNK UNK, QD
     Route: 065
  12. ENTRESTO [Concomitant]
     Active Substance: SACUBITRIL\VALSARTAN
     Dosage: 97/103MG, BID
     Route: 065
  13. ENTRESTO [Concomitant]
     Active Substance: SACUBITRIL\VALSARTAN
     Dosage: UNK, BID
     Route: 065
  14. PREGABALIN [Concomitant]
     Active Substance: PREGABALIN
     Dosage: 300 MILLIGRAM, QD
     Route: 065
  15. DIGITOXIN [Concomitant]
     Active Substance: DIGITOXIN
     Dosage: 0.7 MILLIGRAM, QD
     Route: 065
  16. DIGITOXIN [Concomitant]
     Active Substance: DIGITOXIN
     Dosage: 0.07 MILLIGRAM, QD
     Route: 065
  17. METAMIZOL [Concomitant]
     Active Substance: METAMIZOLE SODIUM
     Dosage: 1000 MILLIGRAM, PRN
     Route: 050
  18. PRIVIGEN [Concomitant]
     Active Substance: HUMAN IMMUNOGLOBULIN G
     Dosage: UNK, QD
  19. PRIVIGEN [Concomitant]
     Active Substance: HUMAN IMMUNOGLOBULIN G
  20. FUROSEMIDE [Concomitant]
     Active Substance: FUROSEMIDE
     Dosage: UNK
     Route: 065
     Dates: start: 20211126
  21. TORSEMIDE [Concomitant]
     Active Substance: TORSEMIDE
     Dosage: 10 MILLIGRAM, QD
     Dates: start: 20211201
  22. METAMIZOL SODIUM [Concomitant]
     Active Substance: METAMIZOL SODIUM
     Dosage: 1000 MILLIGRAM, PRN
     Route: 050

REACTIONS (7)
  - Monoclonal gammopathy [Not Recovered/Not Resolved]
  - Oedema [Recovered/Resolved]
  - Cough [Unknown]
  - Dyspnoea [Recovered/Resolved]
  - Mitral valve incompetence [Recovering/Resolving]
  - Complication associated with device [Not Recovered/Not Resolved]
  - Pyrexia [Recovering/Resolving]

NARRATIVE: CASE EVENT DATE: 20210317
